FAERS Safety Report 9536160 (Version 1)
Quarter: 2013Q2

REPORT INFORMATION
  Report Type: Spontaneous
  Country: US (occurrence: None)
  Receive Date: 20130507
  Receipt Date: 20130507
  Transmission Date: 20140414
  Serious: No
  Sender: FDA-Public Use
  Company Number: PHEH2013US002592

PATIENT
  Sex: Female

DRUGS (11)
  1. AFINITOR (RAD) [Suspect]
     Route: 048
     Dates: start: 201211
  2. CALTRATE (CALCIUIM CARBONATE) [Concomitant]
  3. GLYBURIDE (GLIBENCLAMIDE) [Concomitant]
  4. LEVOTHYROXINE SODIUM (LEVOTHYROXINE SODIUM) [Concomitant]
  5. MULTIVITAMIN (ASCORIC ACID, CALCIUM PANTOTHENATE, ERGOCALCIFEROL, NICOTINAMIDE, PYRIDOXINE HYDROCHLORIDE, RETINOL, RIBOFLAVIN, THIAMINE HYDROCHLORIDE) [Concomitant]
  6. VITAMIN B6  (PYRIDOXINE HYDROCHLORIDE) [Concomitant]
  7. ACYCLOVIR (ACICLOVIR) [Concomitant]
  8. EXEMESTANE (EXEMESTANE) [Concomitant]
  9. PROCHLORPERAZINE (PROCHLORPERAZINE) [Concomitant]
  10. XGEVA (DENOSUMAB) [Concomitant]
  11. AROMASIN (EXEMESTANE) [Concomitant]

REACTIONS (5)
  - Oral disorder [None]
  - Epistaxis [None]
  - Nasal inflammation [None]
  - Stomatitis [None]
  - Decreased appetite [None]
